FAERS Safety Report 4429831-9 (Version None)
Quarter: 2004Q3

REPORT INFORMATION
  Report Type: 
  Country: None (occurrence: None)
  Receive Date: 20040818
  Receipt Date: 20040818
  Transmission Date: 20050211
  Serious: Yes (Life-Threatening, Hospitalization)
  Sender: FDA-Public Use
  Company Number: None

PATIENT
  Age: 70 Year
  Sex: Female
  Weight: 79.6516 kg

DRUGS (13)
  1. AVANDIA [Suspect]
     Indication: DIABETES MELLITUS
     Dosage: 4 MG DAILY ORAL
     Route: 048
     Dates: start: 20040312, end: 20040412
  2. ATENOLOL [Concomitant]
  3. ATARAX [Concomitant]
  4. VITAMIN A [Concomitant]
  5. COZAAR [Concomitant]
  6. ALLOPURINOL [Concomitant]
  7. OSCAL [Concomitant]
  8. VIAGRA [Concomitant]
  9. EPOGEN [Concomitant]
  10. IRON [Concomitant]
  11. NAHCO3 [Concomitant]
  12. DEMADEX [Concomitant]
  13. AVANDIA [Concomitant]

REACTIONS (11)
  - ANURIA [None]
  - BIOPSY LIVER ABNORMAL [None]
  - BLOOD CREATININE INCREASED [None]
  - CHOLELITHIASIS [None]
  - CHOLESTASIS [None]
  - DRUG TOXICITY [None]
  - HAEMODIALYSIS [None]
  - HEPATITIS [None]
  - HYPOTENSION [None]
  - JAUNDICE [None]
  - MENTAL STATUS CHANGES [None]
